FAERS Safety Report 23027009 (Version 5)
Quarter: 2023Q4

REPORT INFORMATION
  Report Type: Report from Study
  Country: BR (occurrence: BR)
  Receive Date: 20231004
  Receipt Date: 20231103
  Transmission Date: 20240110
  Serious: No
  Sender: FDA-Public Use
  Company Number: BR-JNJFOC-20230857612

PATIENT
  Age: 39 Year
  Sex: Female
  Weight: 76 kg

DRUGS (8)
  1. SIMPONI [Suspect]
     Active Substance: GOLIMUMAB
     Indication: Psoriatic arthropathy
     Dosage: LAST DRUG ADMINISTRATION:16-AUG-2023 (STRENGTH: 50.00 MG / 0.50 ML)
     Route: 058
  2. SIMPONI [Suspect]
     Active Substance: GOLIMUMAB
     Dosage: LAST DRUG ADMINISTRATION:16-AUG-2023 (STRENGTH: 50.00 MG / 0.50 ML)
     Route: 058
  3. SIMPONI [Suspect]
     Active Substance: GOLIMUMAB
  4. SIMPONI [Suspect]
     Active Substance: GOLIMUMAB
  5. SIMPONI [Suspect]
     Active Substance: GOLIMUMAB
     Indication: Psoriatic arthropathy
     Dosage: STRENGTH: 50.00 MG / 0.50 ML
     Route: 058
  6. SIMPONI [Suspect]
     Active Substance: GOLIMUMAB
  7. SIMPONI [Suspect]
     Active Substance: GOLIMUMAB
  8. SIMPONI [Suspect]
     Active Substance: GOLIMUMAB

REACTIONS (11)
  - Device deployment issue [Unknown]
  - Anxiety [Recovering/Resolving]
  - Palpitations [Recovering/Resolving]
  - Headache [Recovering/Resolving]
  - Insomnia [Recovering/Resolving]
  - Feeling of despair [Recovering/Resolving]
  - Oropharyngeal pain [Recovering/Resolving]
  - Asthma [Recovering/Resolving]
  - Drug ineffective [Unknown]
  - Pain [Unknown]
  - Musculoskeletal stiffness [Unknown]

NARRATIVE: CASE EVENT DATE: 20230819
